FAERS Safety Report 16704217 (Version 1)
Quarter: 2019Q3

REPORT INFORMATION
  Report Type: Spontaneous
  Country: IL (occurrence: IL)
  Receive Date: 20190814
  Receipt Date: 20190814
  Transmission Date: 20191004
  Serious: Yes (Life-Threatening, Hospitalization)
  Sender: FDA-Public Use
  Company Number: IL-UCBSA-2019019507

PATIENT
  Age: 31 Year
  Sex: Female
  Weight: 58 kg

DRUGS (5)
  1. BRIVARACETAM [Suspect]
     Active Substance: BRIVARACETAM
     Dosage: 100 MILLIGRAM, 2X/DAY (BID)
     Dates: start: 2019, end: 20190605
  2. BRIVARACETAM [Suspect]
     Active Substance: BRIVARACETAM
     Indication: EPILEPSY
     Dosage: 100 MILLIGRAM, 2X/DAY (BID)
     Dates: start: 20190131, end: 2019
  3. KEPPRA [Concomitant]
     Active Substance: LEVETIRACETAM
     Indication: EPILEPSY
     Dosage: 1500 MILLIGRAM, 2X/DAY (BID)
     Dates: start: 201810, end: 201812
  4. TEGRETOL [Concomitant]
     Active Substance: CARBAMAZEPINE
     Indication: EPILEPSY
     Dosage: 400 MILLIGRAM, 2X/DAY (BID)
     Dates: start: 201809, end: 201812
  5. VIMPAT [Suspect]
     Active Substance: LACOSAMIDE
     Indication: EPILEPSY
     Dosage: 150 MILLIGRAM, 2X/DAY (BID)
     Dates: start: 201812, end: 201901

REACTIONS (4)
  - Anxiety [Recovered/Resolved]
  - Suicide attempt [Unknown]
  - Depression [Recovered/Resolved]
  - Partial seizures [Unknown]

NARRATIVE: CASE EVENT DATE: 2019
